FAERS Safety Report 20867260 (Version 4)
Quarter: 2023Q1

REPORT INFORMATION
  Report Type: Spontaneous
  Country: IN (occurrence: IN)
  Receive Date: 20220524
  Receipt Date: 20230308
  Transmission Date: 20230418
  Serious: Yes (Other)
  Sender: FDA-Public Use
  Company Number: IN-PFIZER INC-2020051507

PATIENT
  Age: 52 Year
  Sex: Female

DRUGS (5)
  1. CRIZOTINIB [Suspect]
     Active Substance: CRIZOTINIB
     Indication: Lung cancer metastatic
     Dosage: 250 MG, 2X/DAY
     Route: 048
     Dates: start: 20191017, end: 20220410
  2. CRIZOTINIB [Suspect]
     Active Substance: CRIZOTINIB
     Dosage: 250 MG, 1X/DAY
     Route: 048
  3. GLYCIPHAGE [Concomitant]
     Dosage: 1 DF, MORNING FOR 3 MONTH(S)
     Dates: start: 20220301
  4. LIV 52 [ACHILLEA MILLEFOLIUM;CAPPARIS SPINOSA;CICHORIUM INTYBUS;SENNA [Concomitant]
     Dosage: 2 DF (AFTER MEAL MORNING AND NIGHT FOR 3 MONTH(S))
     Dates: start: 20220301
  5. SHELCAL [CALCIUM CARBONATE;COLECALCIFEROL] [Concomitant]
     Dosage: 1 DF, MORNING FOR 3 MONTH(S)
     Dates: start: 20220307

REACTIONS (10)
  - Back pain [Unknown]
  - Chest X-ray abnormal [Unknown]
  - Cough [Unknown]
  - Pain [Unknown]
  - Respiratory tract infection [Unknown]
  - Urinary tract infection [Recovered/Resolved]
  - Illness [Unknown]
  - Painful respiration [Unknown]
  - Oedema peripheral [Unknown]
  - Product dose omission issue [Unknown]
